FAERS Safety Report 11219097 (Version 1)
Quarter: 2015Q2

REPORT INFORMATION
  Report Type: Spontaneous
  Country: CN (occurrence: CN)
  Receive Date: 20150625
  Receipt Date: 20150625
  Transmission Date: 20150821
  Serious: Yes (Other)
  Sender: FDA-Public Use
  Company Number: CN-BAYER-2015-353861

PATIENT
  Sex: Female

DRUGS (8)
  1. GLUCOBAY [Suspect]
     Active Substance: ACARBOSE
     Dosage: 25 MG, TID
  2. NOVONORM [Suspect]
     Active Substance: REPAGLINIDE
     Dosage: 1 DF, QD
  3. GLUCOBAY [Suspect]
     Active Substance: ACARBOSE
     Dosage: 50 MG, QD
  4. INSULIN [Concomitant]
     Active Substance: INSULIN NOS
     Dosage: 10-11 IU, QD
  5. GLUCOBAY [Suspect]
     Active Substance: ACARBOSE
     Dosage: 50 MG, TID
  6. GLUCOBAY [Suspect]
     Active Substance: ACARBOSE
     Dosage: 100 MG, TID
  7. NOVONORM [Suspect]
     Active Substance: REPAGLINIDE
     Dosage: 1 DF, BID
  8. INSULIN [Concomitant]
     Active Substance: INSULIN NOS
     Dosage: 8 IU, QD

REACTIONS (5)
  - Constipation [Recovering/Resolving]
  - Abdominal distension [Recovering/Resolving]
  - Diabetes mellitus inadequate control [None]
  - Lower limb fracture [Recovering/Resolving]
  - Abdominal discomfort [Recovering/Resolving]

NARRATIVE: CASE EVENT DATE: 2015
